FAERS Safety Report 18455226 (Version 2)
Quarter: 2020Q4

REPORT INFORMATION
  Report Type: Spontaneous
  Country: US (occurrence: US)
  Receive Date: 20201103
  Receipt Date: 20201220
  Transmission Date: 20210114
  Serious: No
  Sender: FDA-Public Use
  Company Number: US-ELI_LILLY_AND_COMPANY-US202011000054

PATIENT
  Sex: Female

DRUGS (2)
  1. INSULIN LISPRO LILLY (MIRIOPEN) (KWIKPEN) [Suspect]
     Active Substance: INSULIN LISPRO
     Indication: DIABETES MELLITUS
     Dosage: 22 U, UNKNOWN
     Route: 058
     Dates: start: 202009
  2. INSULIN LISPRO LILLY (MIRIOPEN) (KWIKPEN) [Suspect]
     Active Substance: INSULIN LISPRO
     Indication: DIABETES MELLITUS
     Dosage: 22 U, UNKNOWN
     Route: 058
     Dates: start: 202009

REACTIONS (3)
  - Injection site pain [Recovering/Resolving]
  - Accidental underdose [Unknown]
  - Injection site haemorrhage [Recovered/Resolved]
